FAERS Safety Report 14480757 (Version 15)
Quarter: 2024Q1

REPORT INFORMATION
  Report Type: Report from Study
  Country: CA (occurrence: CA)
  Receive Date: 20180202
  Receipt Date: 20240116
  Transmission Date: 20240410
  Serious: Yes (Hospitalization, Other)
  Sender: FDA-Public Use
  Company Number: PHHY2018CA014005

PATIENT
  Age: 74 Year
  Sex: Male

DRUGS (8)
  1. COSENTYX [Suspect]
     Active Substance: SECUKINUMAB
     Indication: Psoriatic arthropathy
     Dosage: 300 MG, QMO
     Route: 058
     Dates: start: 20160908
  2. COSENTYX [Suspect]
     Active Substance: SECUKINUMAB
     Dosage: 150 MG, Q 10 DAYS
     Route: 058
     Dates: start: 20160908
  3. COSENTYX [Suspect]
     Active Substance: SECUKINUMAB
     Dosage: 300 MG, QMO
     Route: 058
     Dates: start: 20180106
  4. COSENTYX [Suspect]
     Active Substance: SECUKINUMAB
     Dosage: UNK
     Route: 065
     Dates: start: 20180327
  5. COSENTYX [Suspect]
     Active Substance: SECUKINUMAB
     Dosage: 300 MG, QMO (SENSOREADY PEN)
     Route: 058
  6. COSENTYX [Suspect]
     Active Substance: SECUKINUMAB
     Dosage: 150 MG, Q 10 DAYS (SENSOREADY PEN)
     Route: 058
  7. COSENTYX [Suspect]
     Active Substance: SECUKINUMAB
     Dosage: 150 MG, Q 10 DAY (SENSOREADY PEN)
     Route: 058
     Dates: start: 202303
  8. METHOTREXATE [Concomitant]
     Active Substance: METHOTREXATE
     Indication: Product used for unknown indication
     Dosage: UNK, QW
     Route: 065
     Dates: start: 2008

REACTIONS (17)
  - Epilepsy [Unknown]
  - Confusional state [Unknown]
  - Hypotension [Unknown]
  - Product dose omission issue [Unknown]
  - Renal cell carcinoma [Unknown]
  - Psoriatic arthropathy [Unknown]
  - Tender joint count increased [Unknown]
  - Gait inability [Unknown]
  - Gait disturbance [Unknown]
  - Dysstasia [Unknown]
  - Joint range of motion decreased [Unknown]
  - Pain [Unknown]
  - Inguinal hernia [Unknown]
  - Cognitive disorder [Unknown]
  - Inappropriate schedule of product administration [Unknown]
  - Off label use [Unknown]
  - Drug ineffective [Unknown]

NARRATIVE: CASE EVENT DATE: 20180125
